FAERS Safety Report 25995921 (Version 1)
Quarter: 2025Q4

REPORT INFORMATION
  Report Type: Spontaneous
  Country: US (occurrence: US)
  Receive Date: 20251104
  Receipt Date: 20251104
  Transmission Date: 20260119
  Serious: No
  Sender: VERTEX
  Company Number: US-VERTEX PHARMACEUTICALS-2025-017959

PATIENT
  Age: 28 Year
  Sex: Female
  Weight: 63 kg

DRUGS (16)
  1. JOURNAVX [Suspect]
     Active Substance: SUZETRIGINE
     Indication: Pain
     Dosage: 2 PILLS IN THE MORNING
     Route: 048
  2. JOURNAVX [Suspect]
     Active Substance: SUZETRIGINE
     Dosage: ANOTHER DOSE AT 8 PM
     Route: 048
  3. TYLENOL [Concomitant]
     Active Substance: ACETAMINOPHEN
     Indication: Pain
     Dosage: TOOK 1000 MG IN THE HOSPITAL
  4. TYLENOL [Concomitant]
     Active Substance: ACETAMINOPHEN
     Dosage: TOOK 1000 MG WHEN GOT HOME
  5. TYLENOL [Concomitant]
     Active Substance: ACETAMINOPHEN
     Dosage: TOOK 1000 MG AROUND 7 PM
  6. TYLENOL [Concomitant]
     Active Substance: ACETAMINOPHEN
     Dosage: TOOK 1000 MG AT 1 AM
  7. TYLENOL [Concomitant]
     Active Substance: ACETAMINOPHEN
     Dosage: TOOK 1000 MG AFTER WAKING UP AT 7 AM ON THE SECOND DAY
  8. IBUPROFEN [Concomitant]
     Active Substance: IBUPROFEN
     Indication: Pain
     Dosage: TOOK 600 MG WHEN GOT HOME
  9. IBUPROFEN [Concomitant]
     Active Substance: IBUPROFEN
     Dosage: TOOK 600 MG AROUND 7 PM
  10. IBUPROFEN [Concomitant]
     Active Substance: IBUPROFEN
     Dosage: TOOK 600 MG AT 1 AM
  11. IBUPROFEN [Concomitant]
     Active Substance: IBUPROFEN
     Dosage: TOOK 600 MG AFTER WAKING UP AT 7 AM ON THE SECOND DAY
  12. COLACE [Concomitant]
     Active Substance: DOCUSATE SODIUM
     Dosage: 3 TIMES A DAY
  13. COLACE [Concomitant]
     Active Substance: DOCUSATE SODIUM
     Dosage: TOOK AFTER WAKING UP AT 7 AM ON THE SECOND DAY
  14. MIRALAX [Concomitant]
     Active Substance: POLYETHYLENE GLYCOL 3350
     Dosage: UNK
  15. EXPAREL [Concomitant]
     Active Substance: BUPIVACAINE
     Indication: Pain
     Dosage: UNK
  16. MAGNESIUM [Concomitant]
     Active Substance: MAGNESIUM
     Indication: Insomnia
     Dosage: UNK

REACTIONS (6)
  - Abdominal pain [Recovered/Resolved]
  - Abdominal distension [Unknown]
  - Dizziness [Unknown]
  - Pollakiuria [Unknown]
  - Myalgia [Unknown]
  - Muscle spasms [Unknown]
